FAERS Safety Report 17328912 (Version 1)
Quarter: 2020Q1

REPORT INFORMATION
  Report Type: Spontaneous
  Country: PT (occurrence: PT)
  Receive Date: 20200127
  Receipt Date: 20200127
  Transmission Date: 20200409
  Serious: Yes (Hospitalization, Other)
  Sender: FDA-Public Use
  Company Number: PT-AVION PHARMACEUTICALS, LLC-2079436

PATIENT
  Age: 27 Year
  Sex: Female

DRUGS (2)
  1. BALCOLTRA [Suspect]
     Active Substance: ETHINYL ESTRADIOL\LEVONORGESTREL
     Route: 019
  2. MINOCYCLINE [Suspect]
     Active Substance: MINOCYCLINE HYDROCHLORIDE

REACTIONS (9)
  - Headache [Recovered/Resolved]
  - Photophobia [Unknown]
  - Dizziness [Unknown]
  - Visual field defect [Recovered/Resolved]
  - Papilloedema [Recovering/Resolving]
  - Tinnitus [Unknown]
  - Intracranial pressure increased [Recovered/Resolved]
  - Phonophobia [Unknown]
  - Eye haemorrhage [Unknown]
